FAERS Safety Report 17941446 (Version 1)
Quarter: 2020Q2

REPORT INFORMATION
  Report Type: Spontaneous
  Country: IR (occurrence: IR)
  Receive Date: 20200624
  Receipt Date: 20200624
  Transmission Date: 20200714
  Serious: Yes (Hospitalization, Other)
  Sender: FDA-Public Use
  Company Number: IR-PURDUE-GBR-2020-0077341

PATIENT
  Age: 51 Year
  Sex: Male

DRUGS (1)
  1. NON-PMN BUPRENORPHINE [Suspect]
     Active Substance: BUPRENORPHINE
     Indication: PRODUCT USED FOR UNKNOWN INDICATION
     Dosage: UNK
     Route: 065

REACTIONS (4)
  - Tachycardia [Unknown]
  - Bradycardia [Unknown]
  - Drug abuse [Unknown]
  - Sleep apnoea syndrome [Recovering/Resolving]
